FAERS Safety Report 24676559 (Version 1)
Quarter: 2024Q4

REPORT INFORMATION
  Report Type: Spontaneous
  Country: CH (occurrence: CH)
  Receive Date: 20241128
  Receipt Date: 20241128
  Transmission Date: 20250114
  Serious: Yes (Other)
  Sender: MYLAN
  Company Number: None

PATIENT
  Age: 42 Year
  Sex: Female

DRUGS (3)
  1. ALPRAZOLAM [Interacting]
     Active Substance: ALPRAZOLAM
     Indication: Product used for unknown indication
     Dosage: UNK (DURING HOSPITALISATION (DATES AND DOSAGE NOT REPORTED))
     Route: 065
     Dates: start: 2024, end: 2024
  2. VENLAFAXINE [Interacting]
     Active Substance: VENLAFAXINE HYDROCHLORIDE
     Indication: Product used for unknown indication
     Dosage: 75 MILLIGRAM, QD (REDUCED DOSE DURING HOSPITALISATION)
     Route: 065
     Dates: start: 20240826
  3. VENLAFAXINE [Interacting]
     Active Substance: VENLAFAXINE HYDROCHLORIDE
     Dosage: 37.5 MILLIGRAM, QD (REDUCED DOSE DURING HOSPITALISATION)
     Route: 065
     Dates: start: 2024, end: 20241011

REACTIONS (8)
  - Suicidal ideation [Recovered/Resolved]
  - Nightmare [Recovering/Resolving]
  - Sleep disorder [Not Recovered/Not Resolved]
  - Impatience [Recovering/Resolving]
  - Drug interaction [Recovered/Resolved]
  - Anxiety [Not Recovered/Not Resolved]
  - Tremor [Not Recovered/Not Resolved]
  - Nausea [Not Recovered/Not Resolved]

NARRATIVE: CASE EVENT DATE: 20240101
